FAERS Safety Report 14542398 (Version 4)
Quarter: 2018Q2

REPORT INFORMATION
  Report Type: Spontaneous
  Country: CA (occurrence: CA)
  Receive Date: 20180216
  Receipt Date: 20180402
  Transmission Date: 20180711
  Serious: Yes (Other)
  Sender: FDA-Public Use
  Company Number: CA-CELLTRION INC.-2017CA009434

PATIENT

DRUGS (4)
  1. INFLECTRA [Suspect]
     Active Substance: INFLIXIMAB-DYYB
     Dosage: 380 MG, THEN EVERY 6 WEEKS
     Route: 042
     Dates: start: 20171228, end: 20180215
  2. ADVIL (MEFENAMIC ACID) [Concomitant]
     Active Substance: MEFENAMIC ACID
     Dosage: UNK, AS NEEDED
  3. INFLECTRA [Suspect]
     Active Substance: INFLIXIMAB-DYYB
     Dosage: 380 MG, THEN EVERY 6 WEEKS
     Route: 042
     Dates: start: 20171228, end: 20180215
  4. INFLECTRA [Suspect]
     Active Substance: INFLIXIMAB-DYYB
     Indication: ANKYLOSING SPONDYLITIS
     Dosage: 380 MG, CYCLIC, 0, 2, 6 WEEKS, THEN EVERY 8 WEEKS
     Route: 042
     Dates: start: 20170214

REACTIONS (14)
  - Off label use [Unknown]
  - Abdominal discomfort [Unknown]
  - Tympanic membrane perforation [Recovering/Resolving]
  - Pain [Unknown]
  - Ear discomfort [Recovering/Resolving]
  - Ear pain [Recovering/Resolving]
  - Feeling abnormal [Unknown]
  - Rhinorrhoea [Unknown]
  - Uterine perforation [Recovering/Resolving]
  - Multiple sclerosis [Unknown]
  - Ear haemorrhage [Recovering/Resolving]
  - Cough [Unknown]
  - Condition aggravated [Not Recovered/Not Resolved]
  - Malaise [Unknown]

NARRATIVE: CASE EVENT DATE: 20170711
